FAERS Safety Report 4969425-X (Version None)
Quarter: 2006Q2

REPORT INFORMATION
  Report Type: 
  Country: None (occurrence: None)
  Receive Date: 20060406
  Receipt Date: 20060323
  Transmission Date: 20061013
  Serious: Yes (Other)
  Sender: FDA-Public Use
  Company Number: 200611791BWH

PATIENT
  Age: 71 Year
  Sex: Female
  Weight: 113.3993 kg

DRUGS (4)
  1. TRASYLOL [Suspect]
     Indication: CORONARY ARTERY SURGERY
     Dosage: 200 ML, ONCE, INTRAVENOUS
     Route: 042
     Dates: start: 20060320
  2. MANNITOL [Concomitant]
  3. HEPARIN [Concomitant]
  4. CALCIUM GLUCONATE [Concomitant]

REACTIONS (3)
  - DIALYSIS [None]
  - HAEMATOCRIT DECREASED [None]
  - RENAL FAILURE [None]
